FAERS Safety Report 4265397-4 (Version None)
Quarter: 2004Q1

REPORT INFORMATION
  Report Type: 
  Country: None (occurrence: None)
  Receive Date: 20040106
  Receipt Date: 20040106
  Transmission Date: 20041129
  Serious: Yes (Hospitalization)
  Sender: FDA-Public Use
  Company Number: None

PATIENT
  Age: 11 Year
  Sex: Female
  Weight: 32.659 kg

DRUGS (1)
  1. CONCERTA [Suspect]
     Indication: OVERDOSE
     Dosage: GIVEN 2 ONLY

REACTIONS (7)
  - ABNORMAL BEHAVIOUR [None]
  - BLOOD PRESSURE INCREASED [None]
  - CRYING [None]
  - DIFFICULTY IN WALKING [None]
  - HYPERVENTILATION [None]
  - MEDICATION ERROR [None]
  - POSTURING [None]
